FAERS Safety Report 9752486 (Version 9)
Quarter: 2014Q1

REPORT INFORMATION
  Report Type: Spontaneous
  Country: IT (occurrence: None)
  Receive Date: 20131211
  Receipt Date: 20140205
  Transmission Date: 20141002
  Serious: Yes (Hospitalization)
  Sender: FDA-Public Use
  Company Number: AUR-APL-2013-10286

PATIENT
  Age: 85 Year
  Sex: Female

DRUGS (7)
  1. BISOPROLOL [Suspect]
     Indication: HYPERTENSION
     Dosage: (2.5 MG,1 D)
     Route: 048
     Dates: start: 20130101, end: 20131030
  2. AMIODARONE HYDROCHLORIDE [Suspect]
     Indication: ATRIAL TACHYCARDIA
     Dosage: (1 DOSAGE FORMS,1 D)
     Route: 048
     Dates: start: 20130101, end: 20131030
  3. COUMADIN (WARFARIN SODIUM) [Concomitant]
  4. LASIX (FUROSEMIDE) [Concomitant]
  5. EUTIROX (LEVOTHYROXINE SODIUM) [Concomitant]
  6. OMEPRAZOLE (OMEPRAZOLE) [Concomitant]
  7. SERTRALINE HYDROCHLOIDE (SERTALINE HYDROCHLORIDE) [Concomitant]

REACTIONS (5)
  - Oedema peripheral [None]
  - Pain in extremity [None]
  - Renal failure acute [None]
  - Pleural effusion [None]
  - Fluid retention [None]
